FAERS Safety Report 11317240 (Version 4)
Quarter: 2017Q4

REPORT INFORMATION
  Report Type: Spontaneous
  Country: US (occurrence: US)
  Receive Date: 20150728
  Receipt Date: 20171127
  Transmission Date: 20180320
  Serious: Yes (Hospitalization, Other)
  Sender: FDA-Public Use
  Company Number: US-PFIZER INC-2015246802

PATIENT
  Age: 67 Year
  Sex: Female

DRUGS (18)
  1. IBUPROFEN. [Concomitant]
     Active Substance: IBUPROFEN
  2. METFORMIN [Concomitant]
     Active Substance: METFORMIN HYDROCHLORIDE
  3. VITAMIN D3 [Concomitant]
     Active Substance: CHOLECALCIFEROL
     Dosage: UNK
  4. SENNA S [Concomitant]
     Active Substance: DOCUSATE SODIUM\SENNA LEAF
     Indication: PROPHYLAXIS
  5. SOMAVERT [Suspect]
     Active Substance: PEGVISOMANT
     Indication: ACROMEGALY
     Dosage: 30 MG, 1X/DAY
     Route: 058
     Dates: start: 20020101
  6. TOPROL XL [Concomitant]
     Active Substance: METOPROLOL SUCCINATE
  7. HYDROCODONE/ACETAMINOPHEN [Concomitant]
     Active Substance: ACETAMINOPHEN\HYDROCODONE
  8. AMITRIPTYLINE HCL [Concomitant]
     Active Substance: AMITRIPTYLINE
     Dosage: 10 MG, UNK
  9. DIOVAN [Concomitant]
     Active Substance: VALSARTAN
  10. AMLODIPINE BESYLATE. [Concomitant]
     Active Substance: AMLODIPINE BESYLATE
  11. VALSARTAN AND HYDROCHLOROTHIAZIDE [Concomitant]
     Active Substance: HYDROCHLOROTHIAZIDE\VALSARTAN
  12. CINNAMON. [Concomitant]
     Active Substance: CINNAMON
  13. VITAMIN D [Concomitant]
     Active Substance: CHOLECALCIFEROL
  14. LEFLUNOMIDE. [Concomitant]
     Active Substance: LEFLUNOMIDE
  15. ESTROVEN ENERGY [Concomitant]
  16. SYNTHROID [Concomitant]
     Active Substance: LEVOTHYROXINE SODIUM
  17. IRON [Concomitant]
     Active Substance: IRON
  18. ATENOLOL. [Concomitant]
     Active Substance: ATENOLOL

REACTIONS (13)
  - Cervical spinal stenosis [Unknown]
  - Osteoporosis [Unknown]
  - Cough [Unknown]
  - Gait disturbance [Unknown]
  - Arthralgia [Unknown]
  - Throat irritation [Unknown]
  - Hypersensitivity [Unknown]
  - Rash [Unknown]
  - Dry mouth [Unknown]
  - Neck pain [Unknown]
  - Arthritis [Unknown]
  - Headache [Unknown]
  - Facial pain [Unknown]

NARRATIVE: CASE EVENT DATE: 20150909
